FAERS Safety Report 6048288-8 (Version None)
Quarter: 2009Q1

REPORT INFORMATION
  Report Type: 
  Country: None (occurrence: None)
  Receive Date: 20090123
  Receipt Date: 20090121
  Transmission Date: 20090719
  Serious: Yes (Other)
  Sender: FDA-Public Use
  Company Number: GB-BAYER-200813410BNE

PATIENT
  Sex: Male

DRUGS (2)
  1. NEXAVAR [Suspect]
     Indication: HEPATIC NEOPLASM MALIGNANT
  2. DEXAMETHASONE [Concomitant]
     Indication: DECREASED APPETITE

REACTIONS (1)
  - LUNG DISORDER [None]
